FAERS Safety Report 4641777-X (Version None)
Quarter: 2005Q2

REPORT INFORMATION
  Report Type: 
  Country: None (occurrence: None)
  Receive Date: 20050421
  Receipt Date: 20050412
  Transmission Date: 20051028
  Serious: Yes (Disabling, Other)
  Sender: FDA-Public Use
  Company Number: 3

PATIENT
  Age: 25 Year
  Sex: Female

DRUGS (9)
  1. BUPHENYL [Suspect]
     Indication: BLOOD UREA ABNORMAL
     Dosage: 1 TBSP TID PO
     Route: 048
     Dates: start: 19820101
  2. L- CITRULLINE [Concomitant]
  3. CARNITOR [Concomitant]
  4. TRI0DYCLEAN [Concomitant]
  5. CYMBALTA [Concomitant]
  6. MS CONTIN [Concomitant]
  7. WELLBUTTN [Concomitant]
  8. XANAX [Concomitant]
  9. ULTRAM [Concomitant]

REACTIONS (1)
  - NEUROPATHY PERIPHERAL [None]
